FAERS Safety Report 7271228-0 (Version None)
Quarter: 2011Q1

REPORT INFORMATION
  Report Type: 
  Country: None (occurrence: None)
  Receive Date: 20110202
  Receipt Date: 20110126
  Transmission Date: 20110831
  Serious: Yes (Hospitalization)
  Sender: FDA-Public Use
  Company Number: BE-AMGEN-BELSP2010008033

PATIENT
  Sex: Female
  Weight: 54.8 kg

DRUGS (11)
  1. NEORAL [Suspect]
     Indication: HEART TRANSPLANT
     Dosage: 140 MG, UNK
     Route: 048
     Dates: start: 20020101
  2. EMCONCOR                           /00802601/ [Concomitant]
     Dosage: 5 MG, UNK
     Route: 048
  3. ROCALTROL [Concomitant]
  4. ALLOPURINOL [Suspect]
     Dosage: 100 MG, UNK
  5. CELLCEPT [Concomitant]
     Dosage: 500 MG, UNK
     Route: 048
  6. ARANESP [Suspect]
     Indication: PRODUCT USED FOR UNKNOWN INDICATION
     Dosage: 40 UNK, UNK
     Route: 058
     Dates: start: 20100914, end: 20101207
  7. PRESERVISION LUTEIN EYE VITA.+MIN.SUP.SOFTG. [Concomitant]
     Route: 048
  8. COVERSYL                           /00790701/ [Concomitant]
     Dosage: 5 MG, UNK
     Route: 048
  9. CARDIOASPIRINE [Concomitant]
  10. LIPITOR [Concomitant]
     Dosage: 40 MG, UNK
     Route: 048
  11. BERIVINE [Concomitant]
     Route: 048

REACTIONS (1)
  - HAEMOGLOBIN DECREASED [None]
